FAERS Safety Report 12397776 (Version 1)
Quarter: 2016Q2

REPORT INFORMATION
  Report Type: Spontaneous
  Country: US (occurrence: US)
  Receive Date: 20160524
  Receipt Date: 20160524
  Transmission Date: 20160815
  Serious: Yes (Other)
  Sender: FDA-Public Use
  Company Number: US-PRESTIGE BRANDS -1052682

PATIENT
  Age: 52 Year
  Sex: Female

DRUGS (1)
  1. SUCRETS COMPLETE [Suspect]
     Active Substance: DYCLONINE HYDROCHLORIDE\MENTHOL
     Indication: OROPHARYNGEAL PAIN
     Route: 048
     Dates: start: 20160412, end: 20160414

REACTIONS (2)
  - Anosmia [Not Recovered/Not Resolved]
  - Ageusia [Not Recovered/Not Resolved]

NARRATIVE: CASE EVENT DATE: 20160414
